FAERS Safety Report 7134714-X (Version None)
Quarter: 2010Q4

REPORT INFORMATION
  Report Type: 
  Country: None (occurrence: None)
  Receive Date: 20101203
  Receipt Date: 20101118
  Transmission Date: 20110411
  Serious: Yes (Other)
  Sender: FDA-Public Use
  Company Number: US-ROCHE-722547

PATIENT
  Sex: Female
  Weight: 54.9 kg

DRUGS (4)
  1. ACCUTANE [Suspect]
     Indication: ACNE
     Route: 065
     Dates: start: 19910101, end: 19920101
  2. ACCUTANE [Suspect]
     Route: 065
     Dates: start: 19930801, end: 19940101
  3. MINOCYCLINE HCL [Concomitant]
  4. ORTHO TRI-CYCLEN [Concomitant]

REACTIONS (9)
  - APHTHOUS STOMATITIS [None]
  - CROHN'S DISEASE [None]
  - DEPRESSION [None]
  - ENTEROVESICAL FISTULA [None]
  - EPISTAXIS [None]
  - ILEAL PERFORATION [None]
  - INFLAMMATORY BOWEL DISEASE [None]
  - INTESTINAL OBSTRUCTION [None]
  - SMALL INTESTINAL STENOSIS [None]
